FAERS Safety Report 24753471 (Version 1)
Quarter: 2024Q4

REPORT INFORMATION
  Report Type: Report from Study
  Country: ES (occurrence: ES)
  Receive Date: 20241219
  Receipt Date: 20241219
  Transmission Date: 20250115
  Serious: Yes (Other)
  Sender: MYLAN
  Company Number: ES-MYLANLABS-2024M1113589

PATIENT

DRUGS (5)
  1. DOXORUBICIN [Suspect]
     Active Substance: DOXORUBICIN
     Indication: Bladder cancer
     Dosage: 30 MILLIGRAM/SQ. METER, BIWEEKLY, RECEIVED ON DAY 2 IN 4 CYCLES
     Route: 065
  2. CISPLATIN [Suspect]
     Active Substance: CISPLATIN
     Indication: Bladder cancer
     Dosage: 70 MILLIGRAM/SQ. METER, BIWEEKLY, RECEIVED ON DAY 2 IN 4 CYCLES
     Route: 065
  3. METHOTREXATE [Suspect]
     Active Substance: METHOTREXATE
     Indication: Bladder cancer
     Dosage: 30 MILLIGRAM/SQ. METER, BIWEEKLY, RECEIVED ON DAY 1 IN 4 CYCLES
     Route: 065
  4. VINBLASTINE [Suspect]
     Active Substance: VINBLASTINE
     Indication: Bladder cancer
     Dosage: 3 MILLIGRAM/SQ. METER, BIWEEKLY, RECEIVED ON DAY 2 IN 4 CYCLES
     Route: 065
  5. FILGRASTIM [Concomitant]
     Active Substance: FILGRASTIM
     Indication: Prophylaxis
     Dosage: 300 MICROGRAM, BIWEEKLY, RECEIVED ON DAYS 3-7 IN 4 CYCLES
     Route: 058

REACTIONS (2)
  - Disease progression [Unknown]
  - Drug ineffective [Unknown]
